FAERS Safety Report 6669662-2 (Version None)
Quarter: 2010Q2

REPORT INFORMATION
  Report Type: 
  Country: None (occurrence: None)
  Receive Date: 20100406
  Receipt Date: 20100326
  Transmission Date: 20101027
  Serious: Yes (Life-Threatening, Hospitalization, Other)
  Sender: FDA-Public Use
  Company Number: JP-PFIZER INC-2010032252

PATIENT
  Age: 81 Year
  Sex: Female
  Weight: 73.2 kg

DRUGS (10)
  1. LIPITOR [Suspect]
     Indication: HYPERCHOLESTEROLAEMIA
     Dosage: 10 MG, UID/1X/DAY
     Route: 048
     Dates: start: 20090101
  2. GARENOXACIN [Interacting]
     Dosage: 400 MG UID/1X/DAY
     Route: 048
     Dates: start: 20100220, end: 20100220
  3. TENORMIN [Interacting]
     Indication: MYOCARDIAL ISCHAEMIA
     Dosage: 50 MG IN THE MORNING, 25 MG IN THE EVENING
     Route: 048
     Dates: start: 20000101, end: 20100220
  4. FAMOTIDINE [Concomitant]
     Dosage: 10 MG, UNK
     Dates: start: 20090101
  5. BAKUMONDOUTO [Concomitant]
     Dosage: UNK
     Route: 048
     Dates: start: 20100219, end: 20100220
  6. AMLODIPINE [Concomitant]
     Dosage: UNK
     Route: 048
     Dates: start: 20090101
  7. OLMESARTAN MEDOXOMIL [Concomitant]
     Dosage: 20 MG DAILY
     Route: 048
     Dates: start: 20100201
  8. BUFERIN [Concomitant]
     Dosage: UNK
     Route: 048
     Dates: start: 20090101
  9. ALLOPURINOL [Concomitant]
     Dosage: UNK
     Route: 048
     Dates: start: 20090101
  10. PRORENAL [Concomitant]
     Dosage: UNK
     Route: 048
     Dates: start: 20091021

REACTIONS (4)
  - HYPERTENSION [None]
  - MALAISE [None]
  - PYREXIA [None]
  - SINUS ARREST [None]
